FAERS Safety Report 6250181-2 (Version None)
Quarter: 2009Q2

REPORT INFORMATION
  Report Type: 
  Country: None (occurrence: None)
  Receive Date: 20090626
  Receipt Date: 20090611
  Transmission Date: 20091009
  Serious: Yes (Hospitalization)
  Sender: FDA-Public Use
  Company Number: 235843K09USA

PATIENT
  Sex: Female
  Weight: 2.5 kg

DRUGS (6)
  1. REBIF [Suspect]
     Indication: MULTIPLE SCLEROSIS
     Dosage: TRANSPLACENTAL
     Route: 064
     Dates: start: 20050523, end: 20080619
  2. REBIF [Suspect]
     Indication: MULTIPLE SCLEROSIS
     Dosage: TRANSPLACENTAL
     Route: 064
     Dates: start: 20090211
  3. NASONEX [Suspect]
     Dosage: TRANSPLACENTAL
     Route: 064
  4. UNSPECIFIED PAIN PATCH [Suspect]
     Dosage: TRANSPLACENTAL
     Route: 064
  5. NEXIUM [Suspect]
     Dosage: TRANSPLACENTAL
     Route: 064
  6. PRENATAL VITAMINS (PRENATAL VITAMINS) [Suspect]
     Dosage: TRANSPLACENTAL
     Route: 064

REACTIONS (2)
  - MATERNAL DRUGS AFFECTING FOETUS [None]
  - PLATELET COUNT DECREASED [None]
